FAERS Safety Report 5022844-8 (Version None)
Quarter: 2006Q2

REPORT INFORMATION
  Report Type: 
  Country: None (occurrence: None)
  Receive Date: 20060426
  Receipt Date: 20060317
  Transmission Date: 20061013
  Serious: Yes (Other)
  Sender: FDA-Public Use
  Company Number: 2006041043

PATIENT
  Age: 74 Year
  Sex: Male
  Weight: 74.8435 kg

DRUGS (8)
  1. LYRICA [Suspect]
     Indication: BUTTOCK PAIN
     Dosage: 100 MG (50 MG, 2 IN 1 D), ORAL
     Route: 048
     Dates: start: 20051101
  2. LYRICA [Suspect]
     Indication: PERINEAL PAIN
     Dosage: 100 MG (50 MG, 2 IN 1 D), ORAL
     Route: 048
     Dates: start: 20051101
  3. AMBIEN [Concomitant]
  4. AMOXAPINE [Concomitant]
  5. SEROQUEL [Concomitant]
  6. LOTREL [Concomitant]
  7. TAMSULOSIN HCL [Concomitant]
  8. XALATAN [Concomitant]

REACTIONS (4)
  - DRUG INEFFECTIVE [None]
  - SOMNOLENCE [None]
  - VISION BLURRED [None]
  - WEIGHT INCREASED [None]
